FAERS Safety Report 4318286-0 (Version None)
Quarter: 2004Q1

REPORT INFORMATION
  Report Type: 
  Country: None (occurrence: None)
  Receive Date: 20040315
  Receipt Date: 20001004
  Transmission Date: 20041129
  Serious: Yes (Death, Hospitalization, Other)
  Sender: FDA-Public Use
  Company Number: 200001889BWH

PATIENT
  Age: 69 Year
  Sex: Male

DRUGS (2)
  1. CIPRO [Suspect]
     Indication: ORCHITIS
     Dosage: ORAL
     Route: 048
     Dates: start: 19950506, end: 19950516
  2. CHINESE HERBS [Concomitant]

REACTIONS (9)
  - ATRIAL FIBRILLATION [None]
  - CARDIAC FAILURE CONGESTIVE [None]
  - CARDIOGENIC SHOCK [None]
  - FEELING ABNORMAL [None]
  - MYOCARDIAL INFARCTION [None]
  - NEPHRITIS INTERSTITIAL [None]
  - NEPHROTIC SYNDROME [None]
  - PURPURA [None]
  - RENAL FAILURE [None]
